FAERS Safety Report 5305497-0 (Version None)
Quarter: 2007Q2

REPORT INFORMATION
  Report Type: 
  Country: None (occurrence: None)
  Receive Date: 20070424
  Receipt Date: 20070412
  Transmission Date: 20071010
  Serious: Yes (Life-Threatening, Hospitalization)
  Sender: FDA-Public Use
  Company Number: HQWYE268120MAR07

PATIENT
  Age: 69 Year
  Sex: Male

DRUGS (2)
  1. INDERAL [Suspect]
     Indication: THYROID FUNCTION TEST ABNORMAL
     Route: 048
     Dates: start: 20040601, end: 20040701
  2. MERCAZOLE [Suspect]
     Dosage: UNKNOWN
     Route: 042

REACTIONS (3)
  - AGRANULOCYTOSIS [None]
  - MULTI-ORGAN FAILURE [None]
  - SEPSIS [None]
